FAERS Safety Report 25944223 (Version 2)
Quarter: 2025Q4

REPORT INFORMATION
  Report Type: Spontaneous
  Country: US (occurrence: US)
  Receive Date: 20251021
  Receipt Date: 20251202
  Transmission Date: 20260117
  Serious: No
  Sender: MYLAN
  Company Number: US-MYLANLABS-2025M1086765

PATIENT
  Age: 76 Year
  Sex: Female
  Weight: 55.39 kg

DRUGS (4)
  1. BREYNA [Suspect]
     Active Substance: BUDESONIDE\FORMOTEROL FUMARATE
     Indication: Asthma
     Dosage: 320 PER 9 MICROGRAM, BID (2 PUFFS IN THE MORNING AND 2 PUFFS IN THE EVENING)
     Dates: start: 20250924
  2. BREYNA [Suspect]
     Active Substance: BUDESONIDE\FORMOTEROL FUMARATE
     Indication: Chronic obstructive pulmonary disease
     Dosage: 320 PER 9 MICROGRAM, BID (2 PUFFS IN THE MORNING AND 2 PUFFS IN THE EVENING)
     Route: 055
     Dates: start: 20250924
  3. BREYNA [Suspect]
     Active Substance: BUDESONIDE\FORMOTEROL FUMARATE
     Dosage: 320 PER 9 MICROGRAM, BID (2 PUFFS IN THE MORNING AND 2 PUFFS IN THE EVENING)
     Route: 055
     Dates: start: 20250924
  4. BREYNA [Suspect]
     Active Substance: BUDESONIDE\FORMOTEROL FUMARATE
     Dosage: 320 PER 9 MICROGRAM, BID (2 PUFFS IN THE MORNING AND 2 PUFFS IN THE EVENING)
     Dates: start: 20250924

REACTIONS (3)
  - Device use issue [Unknown]
  - Wrong technique in product usage process [Unknown]
  - Device delivery system issue [Unknown]

NARRATIVE: CASE EVENT DATE: 20251001
